FAERS Safety Report 12349831 (Version 1)
Quarter: 2016Q2

REPORT INFORMATION
  Report Type: Spontaneous
  Country: US (occurrence: US)
  Receive Date: 20160510
  Receipt Date: 20160510
  Transmission Date: 20160815
  Serious: Yes (Death)
  Sender: FDA-Public Use
  Company Number: US-ACCORD-040227

PATIENT
  Age: 77 Year
  Sex: Male

DRUGS (10)
  1. CYCLOPHOSPHAMIDE/CYCLOPHOSPHAMIDE MONOHYDRATE [Suspect]
     Active Substance: CYCLOPHOSPHAMIDE
     Indication: LYMPHOCYTIC LEUKAEMIA
  2. ONCOVIN [Suspect]
     Active Substance: VINCRISTINE SULFATE
     Indication: LYMPHOCYTIC LEUKAEMIA
  3. RITUXAN [Suspect]
     Active Substance: RITUXIMAB
     Indication: LYMPHOCYTIC LEUKAEMIA
  4. METHOTREXATE [Suspect]
     Active Substance: METHOTREXATE
     Indication: LYMPHOCYTIC LEUKAEMIA
  5. DEXAMETHASONE. [Suspect]
     Active Substance: DEXAMETHASONE
     Indication: LYMPHOCYTIC LEUKAEMIA
  6. VINCRISTINE [Suspect]
     Active Substance: VINCRISTINE
     Indication: LYMPHOCYTIC LEUKAEMIA
  7. PREDNISONE. [Suspect]
     Active Substance: PREDNISONE
     Indication: LYMPHOCYTIC LEUKAEMIA
  8. CYTARABINE/CYTARABINE HYDROCHLORIDE/CYTARABINE OCFOSFATE [Suspect]
     Active Substance: CYTARABINE
     Indication: LYMPHOCYTIC LEUKAEMIA
  9. PURINETHOL [Suspect]
     Active Substance: MERCAPTOPURINE
     Indication: LYMPHOCYTIC LEUKAEMIA
  10. DOXORUBICIN [Suspect]
     Active Substance: DOXORUBICIN
     Indication: LYMPHOCYTIC LEUKAEMIA

REACTIONS (4)
  - Basophilia [Fatal]
  - Eosinophilia [Fatal]
  - Acute myeloid leukaemia [Fatal]
  - Platelet-derived growth factor receptor gene mutation [Fatal]
